FAERS Safety Report 6019888-6 (Version None)
Quarter: 2008Q4

REPORT INFORMATION
  Report Type: 
  Country: None (occurrence: None)
  Receive Date: 20081222
  Receipt Date: 20081204
  Transmission Date: 20090506
  Serious: Yes (Death)
  Sender: FDA-Public Use
  Company Number: JPI-P-005591

PATIENT
  Age: 53 Year
  Sex: Female

DRUGS (9)
  1. XYREM [Suspect]
     Indication: DRUG USE FOR UNKNOWN INDICATION
     Dosage: 7.5 GM (3.75 GM,2 IN 1 D), ORAL
     Route: 048
  2. TRAMADOL HCL [Suspect]
     Indication: DRUG USE FOR UNKNOWN INDICATION
     Dosage: 1950 MY (650 MG,3 IN 1 D)
  3. CARISOPRODOL [Suspect]
     Indication: DRUG USE FOR UNKNOWN INDICATION
     Dosage: 350 MG (350 MG,1 IN 1 D)
  4. GABAPENTIN [Concomitant]
  5. CETIRIZINE HCL [Concomitant]
  6. MODAFINIL [Concomitant]
  7. MEPROBAMATE [Concomitant]
  8. ACETAMINOPHEN [Concomitant]
  9. CAFFEINE [Concomitant]

REACTIONS (4)
  - ACCIDENTAL OVERDOSE [None]
  - DRUG TOXICITY [None]
  - SNORING [None]
  - UNRESPONSIVE TO STIMULI [None]
